FAERS Safety Report 12839873 (Version 5)
Quarter: 2017Q1

REPORT INFORMATION
  Report Type: Report from Study
  Country: JP (occurrence: JP)
  Receive Date: 20161012
  Receipt Date: 20170329
  Transmission Date: 20170428
  Serious: Yes (Hospitalization)
  Sender: FDA-Public Use
  Company Number: JP-PFIZER INC-2016449278

PATIENT
  Age: 69 Year
  Sex: Male
  Weight: 68 kg

DRUGS (12)
  1. TOFACITINIB CITRATE [Suspect]
     Active Substance: TOFACITINIB CITRATE
     Dosage: 5 MG, 2X/DAY
     Route: 048
     Dates: start: 20160922, end: 20160924
  2. OMEPRAL [Concomitant]
     Active Substance: OMEPRAZOLE
     Indication: PROPHYLAXIS AGAINST GASTROINTESTINAL ULCER
     Dosage: 10 MG, DAILY
     Route: 048
     Dates: start: 20100426, end: 20160923
  3. METHOTREXATE SODIUM. [Suspect]
     Active Substance: METHOTREXATE SODIUM
     Indication: RHEUMATOID ARTHRITIS
     Dosage: 6 MG, WEEKLY
     Route: 048
     Dates: start: 20151214, end: 20160919
  4. FOLIC ACID. [Concomitant]
     Active Substance: FOLIC ACID
     Indication: PROPHYLAXIS
     Dosage: 5 MG, WEEKLY
     Route: 048
     Dates: start: 20101020, end: 20160914
  5. ADALAT [Concomitant]
     Active Substance: NIFEDIPINE
     Indication: HYPERTENSION
     Dosage: 20 MG, DAILY
     Route: 048
     Dates: start: 20160510, end: 20160923
  6. TOFACITINIB CITRATE [Suspect]
     Active Substance: TOFACITINIB CITRATE
     Indication: RHEUMATOID ARTHRITIS
     Dosage: 5 MG, 2X/DAY
     Route: 048
     Dates: start: 20160713, end: 20160919
  7. MOHRUS [Concomitant]
     Active Substance: KETOPROFEN
     Dosage: 40 MG, DAILY
     Route: 061
     Dates: start: 20120628
  8. LULICON [Concomitant]
     Active Substance: LULICONAZOLE
     Indication: TINEA INFECTION
     Dosage: UNK, AS NEEDED
     Route: 061
  9. ADOAIR [Concomitant]
     Active Substance: FLUTICASONE PROPIONATE\SALMETEROL XINAFOATE
     Indication: BRONCHITIS CHRONIC
     Dosage: UNK
     Route: 061
     Dates: end: 20160923
  10. PREDNISOLONE. [Concomitant]
     Active Substance: PREDNISOLONE
     Indication: RHEUMATOID ARTHRITIS
     Dosage: 1 MG, DAILY
     Route: 048
     Dates: start: 20160225, end: 20160923
  11. ZACRAS [Concomitant]
     Active Substance: AMLODIPINE BESYLATE\AZILSARTAN
     Indication: HYPERTENSION
     Dosage: 1 TABLET, DAILY
     Route: 048
     Dates: start: 20160405, end: 20160923
  12. MOHRUS [Concomitant]
     Active Substance: KETOPROFEN
     Indication: RHEUMATOID ARTHRITIS
     Dosage: 20 MG, DAILY
     Route: 061
     Dates: start: 20100611, end: 20160923

REACTIONS (2)
  - Pneumonia bacterial [Recovering/Resolving]
  - Interstitial lung disease [Recovering/Resolving]

NARRATIVE: CASE EVENT DATE: 20160919
